FAERS Safety Report 6225594-5 (Version None)
Quarter: 2009Q2

REPORT INFORMATION
  Report Type: 
  Country: None (occurrence: None)
  Receive Date: 20090612
  Receipt Date: 20090428
  Transmission Date: 20091009
  Serious: No
  Sender: FDA-Public Use
  Company Number: US-ABBOTT-09P-163-0570493-00

PATIENT
  Sex: Male
  Weight: 88.984 kg

DRUGS (2)
  1. HUMIRA [Suspect]
     Indication: CROHN'S DISEASE
     Dates: start: 20090327
  2. HUMIRA [Suspect]

REACTIONS (4)
  - ABDOMINAL PAIN UPPER [None]
  - INJECTION SITE IRRITATION [None]
  - INJECTION SITE REACTION [None]
  - MALAISE [None]
